FAERS Safety Report 21508630 (Version 1)
Quarter: 2022Q4

REPORT INFORMATION
  Report Type: Spontaneous
  Country: PR (occurrence: PR)
  Receive Date: 20221026
  Receipt Date: 20221026
  Transmission Date: 20230112
  Serious: No
  Sender: FDA-Public Use
  Company Number: PR-BRISTOL-MYERS SQUIBB COMPANY-2022-126752

PATIENT
  Age: 38 Year
  Sex: Female
  Weight: 58.97 kg

DRUGS (1)
  1. ZEPOSIA [Suspect]
     Active Substance: OZANIMOD HYDROCHLORIDE
     Indication: Multiple sclerosis
     Route: 065
     Dates: start: 20221019

REACTIONS (1)
  - Mycoplasma test [Recovered/Resolved]

NARRATIVE: CASE EVENT DATE: 20221020
